FAERS Safety Report 13123707 (Version 1)
Quarter: 2017Q1

REPORT INFORMATION
  Report Type: Spontaneous
  Country: US (occurrence: US)
  Receive Date: 20170117
  Receipt Date: 20170117
  Transmission Date: 20170428
  Serious: Yes (Hospitalization, Other)
  Sender: FDA-Public Use
  Company Number: US-CONCORDIA PHARMACEUTICALS INC.-GSH201701-000439

PATIENT

DRUGS (3)
  1. DIGOXIN. [Suspect]
     Active Substance: DIGOXIN
     Indication: TACHYCARDIA FOETAL
     Route: 064
  2. EPHEDRINE. [Concomitant]
     Active Substance: EPHEDRINE
     Route: 064
  3. GLYCOPYRROLATE. [Concomitant]
     Active Substance: GLYCOPYRROLATE
     Route: 064

REACTIONS (3)
  - Drug ineffective [Recovered/Resolved]
  - Atrial flutter [Recovered/Resolved]
  - Foetal exposure during pregnancy [Recovered/Resolved]
